FAERS Safety Report 4319581-1 (Version None)
Quarter: 2004Q1

REPORT INFORMATION
  Report Type: 
  Country: None (occurrence: None)
  Receive Date: 20040319
  Receipt Date: 20040206
  Transmission Date: 20041129
  Serious: Yes (Other)
  Sender: FDA-Public Use
  Company Number: JP-ROCHE-358916

PATIENT
  Age: 10 Year
  Sex: Female
  Weight: 32 kg

DRUGS (13)
  1. TAMIFLU [Suspect]
     Dosage: FORMULATION REPORTED AS 3% DRY SYRUP.
     Route: 048
     Dates: start: 20040203, end: 20040204
  2. ZESULAN [Concomitant]
     Route: 048
     Dates: start: 20040201, end: 20040217
  3. TRANSAMIN [Concomitant]
     Indication: PLASMIN INHIBITOR
     Route: 048
     Dates: start: 20040201, end: 20040217
  4. STRONGER NEO-MINOPHAGEN C [Concomitant]
     Indication: URTICARIA
     Dosage: FORM REPORTED AS INJECTION TAKEN ON 01, 03 AND 05 NOT ON 02 AND 04 FEB 2004
     Route: 042
     Dates: start: 20040201, end: 20040205
  5. CLARITH [Concomitant]
     Indication: SYSTEMIC ANTIBACTERIAL THERAPY
     Route: 048
     Dates: start: 20040201, end: 20040202
  6. ASVERIN [Concomitant]
     Indication: COUGH
     Route: 048
     Dates: start: 20040201, end: 20040205
  7. NOLEPTAN [Concomitant]
     Indication: COUGH
     Route: 048
     Dates: start: 20040201, end: 20040205
  8. TELGIN G [Concomitant]
     Dosage: FORM REPORTED AS DRY SYRUP
     Route: 048
     Dates: start: 20040203, end: 20040205
  9. MIYA BM [Concomitant]
     Route: 048
     Dates: start: 20040203, end: 20040205
  10. BERACHIN [Concomitant]
     Indication: COUGH
     Dosage: FORM REPORTED AS DRY SYRUP
     Route: 048
     Dates: start: 20040203, end: 20040205
  11. LEFTOSE [Concomitant]
     Indication: INFLAMMATION
     Route: 048
     Dates: start: 20040202, end: 20040203
  12. CARBOCYSTEINE [Concomitant]
     Dosage: TRADE NAME REPORTED AS MUCOTRON
     Route: 048
     Dates: start: 20040202, end: 20040203
  13. HOKUNALIN [Concomitant]
     Dosage: ROUTE REPORTED AS OD, FORM REPORTED AS TAPE
     Route: 050
     Dates: start: 20040201, end: 20040207

REACTIONS (4)
  - BLOOD ALKALINE PHOSPHATASE INCREASED [None]
  - C-REACTIVE PROTEIN INCREASED [None]
  - ERYTHEMA MULTIFORME [None]
  - WHITE BLOOD CELL COUNT DECREASED [None]
